FAERS Safety Report 8669619 (Version 2)
Quarter: 2012Q4

REPORT INFORMATION
  Report Type: Spontaneous
  Country: GB (occurrence: None)
  Receive Date: 20120702
  Receipt Date: 20120814
  Transmission Date: 20130627
  Serious: Yes (Hospitalization)
  Sender: FDA-Public Use
  Company Number: 2012-002237

PATIENT
  Age: 7 Year
  Sex: Male
  Weight: 20 kg

DRUGS (10)
  1. ASACOL [Suspect]
     Indication: ULCERATIVE COLITIS
     Dosage: , ORAL
     Route: 048
  2. PREDNISOLONE [Concomitant]
  3. VALGANCICLOVIR HYDROCHLORIDE [Concomitant]
  4. URSODIOL [Concomitant]
  5. TACROLIMUS [Concomitant]
  6. OMEPRAZOLE [Concomitant]
  7. NYSTATIN [Concomitant]
  8. ACETAMINOPHEN [Concomitant]
  9. PIPERACILLIN SODIUM\TAZOBACTAM SODIUM [Concomitant]
  10. AZATHIOPRINE [Concomitant]

REACTIONS (3)
  - Medication residue [None]
  - Off label use [None]
  - Unevaluable event [None]
